FAERS Safety Report 24982349 (Version 1)
Quarter: 2025Q1

REPORT INFORMATION
  Report Type: Spontaneous
  Country: US (occurrence: None)
  Receive Date: 20250216
  Receipt Date: 20250216
  Transmission Date: 20250409
  Serious: Yes (Hospitalization, Disabling, Other)
  Sender: FDA-CTU
  Company Number: None

PATIENT
  Age: 23 Year
  Sex: Male
  Weight: 54 kg

DRUGS (2)
  1. FINASTERIDE [Suspect]
     Active Substance: FINASTERIDE
     Indication: Androgenetic alopecia
     Dosage: OTHER QUANTITY : 90 TABLET(S);?FREQUENCY : DAILY;?
     Route: 048
  2. Seed brand probiotic [Concomitant]

REACTIONS (25)
  - Libido decreased [None]
  - Erectile dysfunction [None]
  - Semen analysis abnormal [None]
  - Testicular pain [None]
  - Sexual dysfunction [None]
  - Cognitive disorder [None]
  - Brain fog [None]
  - Vision blurred [None]
  - Aphantasia [None]
  - Anhedonia [None]
  - Depersonalisation/derealisation disorder [None]
  - Amnesia [None]
  - Blunted affect [None]
  - Suicidal ideation [None]
  - Collagen disorder [None]
  - Skin striae [None]
  - Gastrointestinal disorder [None]
  - Malabsorption [None]
  - Food intolerance [None]
  - Fatigue [None]
  - Dry skin [None]
  - Muscle atrophy [None]
  - Weight decreased [None]
  - Impaired work ability [None]
  - Fatigue [None]

NARRATIVE: CASE EVENT DATE: 20220226
